FAERS Safety Report 21410263 (Version 3)
Quarter: 2022Q4

REPORT INFORMATION
  Report Type: Report from Study
  Country: TN (occurrence: None)
  Receive Date: 20221005
  Receipt Date: 20221111
  Transmission Date: 20230112
  Serious: Yes (Hospitalization)
  Sender: FDA-Public Use
  Company Number: TN-Merck Healthcare KGaA-9355048

PATIENT
  Age: 45 Year
  Sex: Male

DRUGS (1)
  1. REBIF [Suspect]
     Active Substance: INTERFERON BETA-1A
     Indication: Multiple sclerosis
     Route: 058
     Dates: start: 2019, end: 202209

REACTIONS (1)
  - Renal failure [Unknown]
